FAERS Safety Report 25645815 (Version 1)
Quarter: 2025Q3

REPORT INFORMATION
  Report Type: Spontaneous
  Country: EU (occurrence: EU)
  Receive Date: 20250805
  Receipt Date: 20250805
  Transmission Date: 20251021
  Serious: Yes (Other)
  Sender: AMGEN
  Company Number: EU-AMGEN-ESPSP2025152027

PATIENT
  Age: 42 Year
  Sex: Female

DRUGS (4)
  1. ADALIMUMAB [Suspect]
     Active Substance: ADALIMUMAB
     Indication: Multicentric reticulohistiocytosis
     Dosage: 40 MILLIGRAM, Q2WK
     Route: 065
  2. ADALIMUMAB [Suspect]
     Active Substance: ADALIMUMAB
     Dosage: UNK UNK, QWK
     Route: 065
  3. CHLOROQUINE [Concomitant]
     Active Substance: CHLOROQUINE
  4. PREDNISONE [Concomitant]
     Active Substance: PREDNISONE

REACTIONS (3)
  - Multicentric reticulohistiocytosis [Recovered/Resolved]
  - Drug ineffective for unapproved indication [Unknown]
  - Off label use [Unknown]
